FAERS Safety Report 19679093 (Version 1)
Quarter: 2021Q3

REPORT INFORMATION
  Report Type: Spontaneous
  Country: US (occurrence: US)
  Receive Date: 20210809
  Receipt Date: 20210809
  Transmission Date: 20211014
  Serious: Yes (Other)
  Sender: FDA-Public Use
  Company Number: US-PURDUE-USA-2020-0280843

PATIENT

DRUGS (2)
  1. HYDROCODONE BITARTRATE (SIMILAR TO NDA 206627) [Suspect]
     Active Substance: HYDROCODONE BITARTRATE
     Indication: INTERVERTEBRAL DISC DEGENERATION
     Dosage: 5 MG, UNK, 60 PER MONTH
     Route: 065
  2. HYDROCODONE BITARTRATE (SIMILAR TO NDA 206627) [Suspect]
     Active Substance: HYDROCODONE BITARTRATE
     Dosage: 10 MG, UNK, 180 PER MONTH
     Route: 065

REACTIONS (12)
  - Borderline personality disorder [Unknown]
  - Decreased interest [Unknown]
  - Anxiety [Unknown]
  - Major depression [Unknown]
  - Mood swings [Unknown]
  - Drug dependence [Unknown]
  - Hypertension [Unknown]
  - Social avoidant behaviour [Unknown]
  - Intervertebral disc degeneration [Unknown]
  - Heart injury [Unknown]
  - Erectile dysfunction [Unknown]
  - Condition aggravated [Unknown]

NARRATIVE: CASE EVENT DATE: 199912
